FAERS Safety Report 5496074-X (Version None)
Quarter: 2007Q4

REPORT INFORMATION
  Report Type: 
  Country: None (occurrence: None)
  Receive Date: 20071025
  Receipt Date: 20070119
  Transmission Date: 20080405
  Serious: No
  Sender: FDA-Public Use
  Company Number: A0636316A

PATIENT
  Age: 57 Year
  Sex: Female

DRUGS (5)
  1. ADVAIR DISKUS 100/50 [Suspect]
     Indication: CHRONIC OBSTRUCTIVE PULMONARY DISEASE
     Route: 055
     Dates: start: 20070116
  2. SINGULAIR [Concomitant]
  3. BROMINE [Concomitant]
  4. ALBUTEROL NEB [Concomitant]
  5. ZYRTEC [Concomitant]

REACTIONS (1)
  - ANOSMIA [None]
